FAERS Safety Report 19918442 (Version 5)
Quarter: 2022Q3

REPORT INFORMATION
  Report Type: Report from Study
  Country: CO (occurrence: CO)
  Receive Date: 20211005
  Receipt Date: 20220924
  Transmission Date: 20221027
  Serious: Yes (Hospitalization, Other)
  Sender: FDA-Public Use
  Company Number: CO-NOVARTISPH-NVSC2021CO211150

PATIENT
  Age: 39 Year
  Sex: Female
  Weight: 87 kg

DRUGS (6)
  1. XOLAIR [Suspect]
     Active Substance: OMALIZUMAB
     Indication: Asthma
     Dosage: 450 MG, QMO (3 YEARS AGO)
     Route: 058
     Dates: start: 20210917
  2. XOLAIR [Suspect]
     Active Substance: OMALIZUMAB
     Dosage: 450 MG, QMO
     Route: 058
     Dates: start: 20211102
  3. XOLAIR [Suspect]
     Active Substance: OMALIZUMAB
     Dosage: 450 MG, QMO
     Route: 058
  4. MONTELUKAST [Suspect]
     Active Substance: MONTELUKAST SODIUM
     Indication: Asthma
     Dosage: 10 MG, QD (A YEAR AGO)
     Route: 048
  5. BILASTINE [Concomitant]
     Active Substance: BILASTINE
     Indication: Asthma
     Dosage: 10 MG, QD (A YEAR AGO)
     Route: 048
  6. LEVOTHYROXINE [Concomitant]
     Active Substance: LEVOTHYROXINE
     Indication: Hyperthyroidism
     Dosage: 250 MG, QD
     Route: 048

REACTIONS (13)
  - Asthmatic crisis [Unknown]
  - Aneurysm [Unknown]
  - Electric shock sensation [Unknown]
  - Illness [Unknown]
  - Ear pain [Unknown]
  - Urticaria [Unknown]
  - Swelling [Unknown]
  - Middle ear inflammation [Unknown]
  - Dizziness [Not Recovered/Not Resolved]
  - Pigmentation disorder [Unknown]
  - Viral infection [Unknown]
  - Influenza [Unknown]
  - Product dose omission issue [Unknown]

NARRATIVE: CASE EVENT DATE: 20210501
